FAERS Safety Report 18480208 (Version 1)
Quarter: 2020Q4

REPORT INFORMATION
  Report Type: Spontaneous
  Country: US (occurrence: US)
  Receive Date: 20201109
  Receipt Date: 20201109
  Transmission Date: 20210114
  Serious: No
  Sender: FDA-Public Use
  Company Number: US-SA-2020SA313114

PATIENT

DRUGS (12)
  1. TRIAMCINOLONE ACETONIDE. [Concomitant]
     Active Substance: TRIAMCINOLONE ACETONIDE
  2. PREDNISONE. [Concomitant]
     Active Substance: PREDNISONE
  3. BONIVA [Concomitant]
     Active Substance: IBANDRONATE SODIUM
  4. CLOBETASOL [Concomitant]
     Active Substance: CLOBETASOL
  5. HYDROCORTISONE. [Concomitant]
     Active Substance: HYDROCORTISONE
  6. HYDROXYZINE HCL [Concomitant]
     Active Substance: HYDROXYZINE HYDROCHLORIDE
  7. MONTELUKAST SODIUM. [Concomitant]
     Active Substance: MONTELUKAST SODIUM
  8. EFFEXOR [Concomitant]
     Active Substance: VENLAFAXINE HYDROCHLORIDE
     Dosage: UNK UNK, BID
  9. CARBAMAZEPINE. [Concomitant]
     Active Substance: CARBAMAZEPINE
     Dosage: UNK UNK, BID (SR)
  10. ELIDEL [Concomitant]
     Active Substance: PIMECROLIMUS
  11. DUPIXENT [Suspect]
     Active Substance: DUPILUMAB
     Indication: DERMATITIS ATOPIC
     Dosage: 1 DF, QOW
     Route: 058
  12. FLUOCINONIDE. [Concomitant]
     Active Substance: FLUOCINONIDE

REACTIONS (1)
  - Product use issue [Unknown]
